FAERS Safety Report 23420877 (Version 1)
Quarter: 2024Q1

REPORT INFORMATION
  Report Type: Other
  Country: GB (occurrence: GB)
  Receive Date: 20240119
  Receipt Date: 20240119
  Transmission Date: 20240409
  Serious: Yes (Other)
  Sender: FDA-Public Use
  Company Number: None

PATIENT

DRUGS (2)
  1. ROSUVASTATIN CALCIUM [Suspect]
     Active Substance: ROSUVASTATIN CALCIUM
     Indication: Product used for unknown indication
     Dosage: 5 MILLIGRAM EVERY OTHER DAY
     Route: 065
  2. ROSUVASTATIN CALCIUM [Suspect]
     Active Substance: ROSUVASTATIN CALCIUM
     Dosage: 5 MILLIGRAM, OD (DUE TO INCREASE THIS MEDICATION TO 1 A DAY AFTER ANOTHER 3 DOSES
     Route: 065

REACTIONS (4)
  - Musculoskeletal stiffness [Unknown]
  - Constipation [Unknown]
  - Abdominal pain [Unknown]
  - Myalgia [Unknown]
